FAERS Safety Report 21151429 (Version 15)
Quarter: 2023Q1

REPORT INFORMATION
  Report Type: Report from Study
  Country: KR (occurrence: None)
  Receive Date: 20220730
  Receipt Date: 20230228
  Transmission Date: 20230417
  Serious: Yes (Death, Hospitalization, Other)
  Sender: FDA-Public Use
  Company Number: KR-ROCHE-3140050

PATIENT
  Age: 82 Year
  Sex: Male
  Weight: 48.2 kg

DRUGS (90)
  1. MOSUNETUZUMAB [Suspect]
     Active Substance: MOSUNETUZUMAB
     Indication: Diffuse large B-cell lymphoma
     Dosage: DATE OF MOST RECENT DOSE (45 MG) OF STUDY DRUG PRIOR TO SAE: 22/JUN/2022?DATE OF MOST RECENT DOSE 11
     Route: 058
     Dates: start: 20220511
  2. POLATUZUMAB VEDOTIN [Suspect]
     Active Substance: POLATUZUMAB VEDOTIN
     Indication: Diffuse large B-cell lymphoma
     Dosage: DATE OF MOST RECENT DOSE (85.68 MG) OF STUDY DRUG PRIOR TO SAE: 22/JUN/2022?DATE OF MOST RECENT DOSE
     Route: 042
     Dates: start: 20220511
  3. COUGH SYRUP [AMMONIUM CHLORIDE;CHLORPHENAMINE MALEATE;DIHYDROCODEINE B [Concomitant]
     Route: 048
     Dates: start: 20220621
  4. DEXILANT [Concomitant]
     Active Substance: DEXLANSOPRAZOLE
     Route: 048
     Dates: start: 20220429, end: 20220718
  5. SYNTHROID [Concomitant]
     Active Substance: LEVOTHYROXINE SODIUM
     Route: 048
     Dates: start: 20220501
  6. SYNTHROID [Concomitant]
     Active Substance: LEVOTHYROXINE SODIUM
     Route: 048
     Dates: start: 20220504
  7. SYNTHROID [Concomitant]
     Active Substance: LEVOTHYROXINE SODIUM
     Dates: start: 20220524, end: 20220909
  8. MAGNESIUM HYDROXIDE [Concomitant]
     Active Substance: MAGNESIUM HYDROXIDE
     Route: 048
     Dates: start: 20220502, end: 20220926
  9. NAFTOPIDIL [Concomitant]
     Active Substance: NAFTOPIDIL
     Route: 048
     Dates: start: 20220505, end: 20220909
  10. NAXEN-F [Concomitant]
     Route: 048
     Dates: start: 20220429
  11. DIOVAN [Concomitant]
     Active Substance: VALSARTAN
     Route: 048
     Dates: start: 20220427, end: 20220909
  12. LASIX [Concomitant]
     Active Substance: FUROSEMIDE
     Dosage: 1 AMPULE
     Route: 042
     Dates: start: 20220505, end: 20220926
  13. LASIX [Concomitant]
     Active Substance: FUROSEMIDE
     Dosage: 0.5 AMPULE
     Route: 042
     Dates: start: 20220906, end: 20220926
  14. .ALPHA.-TOCOPHEROL ACETATE\ALLANTOIN\LIDOCAINE\PREDNISOLONE [Concomitant]
     Active Substance: .ALPHA.-TOCOPHEROL ACETATE\ALLANTOIN\LIDOCAINE\PREDNISOLONE
     Dosage: 1 OTHER
     Route: 062
     Dates: start: 20220508, end: 20220926
  15. ALLEGRA [Concomitant]
     Active Substance: FEXOFENADINE HYDROCHLORIDE
     Dates: start: 20220517, end: 20220926
  16. XYZAL [Concomitant]
     Active Substance: LEVOCETIRIZINE DIHYDROCHLORIDE
     Dates: start: 20220517, end: 20220926
  17. TYLENOL [Concomitant]
     Active Substance: ACETAMINOPHEN
     Route: 048
     Dates: start: 20220803, end: 20220926
  18. D-MAC [Concomitant]
     Route: 048
     Dates: start: 20220524, end: 20220926
  19. HEXAMEDINE [Concomitant]
     Dosage: 1 OTHER
     Route: 048
     Dates: start: 20220601, end: 20220926
  20. TANTUM [Concomitant]
     Active Substance: BENZYDAMINE HYDROCHLORIDE
     Dosage: 1 OTHER
     Route: 048
     Dates: start: 20220601, end: 20220926
  21. ZOLPIDEM TARTRATE [Concomitant]
     Active Substance: ZOLPIDEM TARTRATE
     Route: 048
     Dates: start: 20220608, end: 20220926
  22. MELATONIN [Concomitant]
     Active Substance: MELATONIN
     Route: 048
     Dates: start: 20220712, end: 20220926
  23. ORNITHINE ASPARTATE [Concomitant]
     Active Substance: ORNITHINE ASPARTATE
     Dosage: 2 AMPULE, 500MG/ML
     Route: 042
     Dates: start: 20220713, end: 20220926
  24. SODIUM CHLORIDE [Concomitant]
     Active Substance: SODIUM CHLORIDE
     Dosage: 1 AMPULE
     Route: 042
     Dates: start: 20220714, end: 20220926
  25. MEGACE [Concomitant]
     Active Substance: MEGESTROL ACETATE
     Dosage: 1 OTHER
     Route: 048
     Dates: start: 20220716, end: 20220909
  26. MEGACE [Concomitant]
     Active Substance: MEGESTROL ACETATE
     Route: 048
     Dates: start: 20220910, end: 20220926
  27. MORPHINE SULFATE [Concomitant]
     Active Substance: MORPHINE SULFATE
     Route: 042
     Dates: start: 20220717, end: 20220926
  28. MORPHINE SULFATE [Concomitant]
     Active Substance: MORPHINE SULFATE
     Route: 042
     Dates: start: 20220718, end: 20220926
  29. TRAMADOL HYDROCHLORIDE [Concomitant]
     Active Substance: TRAMADOL HYDROCHLORIDE
     Dosage: 1 AMPULE
     Route: 042
     Dates: start: 20220717, end: 20220926
  30. FOTAGEL [Concomitant]
     Route: 048
     Dates: start: 20220720, end: 20220926
  31. LOPERAMIDE [Concomitant]
     Active Substance: LOPERAMIDE
     Dosage: 1 CAPSULE
     Route: 048
     Dates: start: 20220721, end: 20220926
  32. ESOMEZOLE [Concomitant]
     Dates: start: 20220707, end: 20220909
  33. PROPACETAMOL HYDROCHLORIDE [Concomitant]
     Active Substance: PROPACETAMOL HYDROCHLORIDE
     Route: 042
     Dates: start: 20220801, end: 20220926
  34. PHENIRAMINE [Concomitant]
     Active Substance: PHENIRAMINE
     Dosage: 1 AMPULE
     Route: 042
     Dates: start: 20220802, end: 20220926
  35. PHENIRAMINE [Concomitant]
     Active Substance: PHENIRAMINE
     Dosage: 1 AMPULE
     Route: 042
     Dates: start: 20220819, end: 20220819
  36. PHENIRAMINE [Concomitant]
     Active Substance: PHENIRAMINE
     Dosage: 1 AMPULE
     Route: 042
     Dates: start: 20220907, end: 20220907
  37. PHENIRAMINE [Concomitant]
     Active Substance: PHENIRAMINE
     Route: 042
     Dates: start: 20220622, end: 20220622
  38. PHENIRAMINE [Concomitant]
     Active Substance: PHENIRAMINE
     Route: 042
     Dates: start: 20220907, end: 20220907
  39. DESOWEN [Concomitant]
     Active Substance: DESONIDE
     Dosage: 1 OTHER
     Route: 062
     Dates: start: 20220802, end: 20220926
  40. FENTADUR [Concomitant]
     Route: 062
     Dates: start: 20220804, end: 20220926
  41. PHOSTEN [Concomitant]
     Dosage: 1 AMPULE
     Route: 042
     Dates: start: 20220804, end: 20220926
  42. GRASIN [Concomitant]
     Dosage: 1 OTHER
     Route: 058
     Dates: start: 20220808, end: 20220810
  43. GRASIN [Concomitant]
     Route: 058
     Dates: start: 20220919, end: 20220925
  44. ZANAPAM [Concomitant]
     Route: 048
     Dates: start: 20220812, end: 20220926
  45. MOSAPRIDE CITRATE [Concomitant]
     Active Substance: MOSAPRIDE CITRATE
     Route: 048
     Dates: start: 20220812, end: 20220909
  46. DULACKHAN EASY [Concomitant]
     Dosage: 1 OTHER
     Route: 048
     Dates: start: 20220815, end: 20220926
  47. SULFAMETHOXAZOLE\TRIMETHOPRIM [Concomitant]
     Active Substance: SULFAMETHOXAZOLE\TRIMETHOPRIM
     Dosage: 1 TABLET
     Route: 048
     Dates: start: 20220816, end: 20220909
  48. SULFAMETHOXAZOLE\TRIMETHOPRIM [Concomitant]
     Active Substance: SULFAMETHOXAZOLE\TRIMETHOPRIM
     Route: 048
     Dates: start: 20220910, end: 20220926
  49. SULFAMETHOXAZOLE\TRIMETHOPRIM [Concomitant]
     Active Substance: SULFAMETHOXAZOLE\TRIMETHOPRIM
     Route: 048
     Dates: start: 20220713, end: 20220715
  50. SULFAMETHOXAZOLE\TRIMETHOPRIM [Concomitant]
     Active Substance: SULFAMETHOXAZOLE\TRIMETHOPRIM
     Route: 048
     Dates: start: 20220713, end: 20220715
  51. SULFAMETHOXAZOLE\TRIMETHOPRIM [Concomitant]
     Active Substance: SULFAMETHOXAZOLE\TRIMETHOPRIM
     Dosage: STRENGTH: 80/400MG
     Route: 048
     Dates: start: 20220720, end: 20220806
  52. ESROBAN [Concomitant]
     Dosage: 1 OTHER
     Route: 062
     Dates: start: 20220816, end: 20220926
  53. BERAPROST [Concomitant]
     Active Substance: BERAPROST
     Route: 048
     Dates: start: 20220816, end: 20220909
  54. HALOPERIDOL [Concomitant]
     Active Substance: HALOPERIDOL
     Dosage: 0.5 AMPULE
     Route: 042
     Dates: start: 20220819, end: 20220819
  55. RAMOSETRON HYDROCHLORIDE [Concomitant]
     Active Substance: RAMOSETRON HYDROCHLORIDE
     Route: 042
     Dates: start: 20220819, end: 20220819
  56. RAMOSETRON HYDROCHLORIDE [Concomitant]
     Active Substance: RAMOSETRON HYDROCHLORIDE
     Route: 042
     Dates: start: 20220907, end: 20220907
  57. RAMOSETRON HYDROCHLORIDE [Concomitant]
     Active Substance: RAMOSETRON HYDROCHLORIDE
     Route: 042
     Dates: start: 20220622, end: 20220622
  58. RAMOSETRON HYDROCHLORIDE [Concomitant]
     Active Substance: RAMOSETRON HYDROCHLORIDE
     Route: 042
     Dates: start: 20220727, end: 20220727
  59. DEXAMETHASONE SODIUM PHOSPHATE [Concomitant]
     Active Substance: DEXAMETHASONE SODIUM PHOSPHATE
     Route: 042
     Dates: start: 20220819, end: 20220819
  60. DEXAMETHASONE SODIUM PHOSPHATE [Concomitant]
     Active Substance: DEXAMETHASONE SODIUM PHOSPHATE
     Route: 042
     Dates: start: 20220907, end: 20220907
  61. ATIVAN [Concomitant]
     Active Substance: LORAZEPAM
     Dosage: 0.5 AMPULE
     Route: 042
     Dates: start: 20220820, end: 20220820
  62. VENITOL [Concomitant]
     Route: 048
     Dates: start: 20220824, end: 20220909
  63. MIRTAPIN [Concomitant]
     Route: 048
     Dates: start: 20220829, end: 20220926
  64. ACTIFED NEW [Concomitant]
     Route: 048
     Dates: start: 20220901, end: 20220926
  65. HALOPERIDOL [Concomitant]
     Active Substance: HALOPERIDOL
     Route: 048
     Dates: start: 20220901, end: 20220926
  66. EDOXABAN TOSYLATE [Concomitant]
     Active Substance: EDOXABAN TOSYLATE
     Route: 048
     Dates: start: 20220903, end: 20220926
  67. EDOXABAN TOSYLATE [Concomitant]
     Active Substance: EDOXABAN TOSYLATE
     Route: 048
     Dates: start: 20220729, end: 20220801
  68. MAXIPIME [Concomitant]
     Active Substance: CEFEPIME HYDROCHLORIDE
     Route: 042
     Dates: start: 20220909, end: 20220911
  69. MAXIPIME [Concomitant]
     Active Substance: CEFEPIME HYDROCHLORIDE
     Route: 042
     Dates: start: 20220909, end: 20220911
  70. MECKOOL [Concomitant]
     Route: 042
     Dates: start: 20220911, end: 20220926
  71. ROXOL (SOUTH KOREA) [Concomitant]
     Route: 048
     Dates: start: 20220911, end: 20220926
  72. VALENTAC [Concomitant]
     Dosage: 1 AMPULE
     Route: 042
     Dates: start: 20220912, end: 20220926
  73. TAZOPERAN [Concomitant]
     Route: 042
     Dates: start: 20220913, end: 20220926
  74. TAZOPERAN [Concomitant]
     Route: 042
     Dates: start: 20220715, end: 20220718
  75. NORPIN [NOREPINEPHRINE] [Concomitant]
     Dosage: 1 AMPULE
     Route: 042
     Dates: start: 20220913, end: 20220913
  76. MUCOMYST [Concomitant]
     Active Substance: ACETYLCYSTEINE
     Dates: start: 20220915, end: 20220926
  77. IPRATROPIUM BROMIDE [Concomitant]
     Active Substance: IPRATROPIUM BROMIDE
     Dates: start: 20220915, end: 20220926
  78. ACETYLCYSTEINE [Concomitant]
     Active Substance: ACETYLCYSTEINE
     Dosage: 1 AMPULE
     Route: 042
     Dates: start: 20220915, end: 20220926
  79. VENTOLIN [Concomitant]
     Active Substance: ALBUTEROL SULFATE
     Dates: start: 20220915, end: 20220926
  80. PANTOPRAZOLE SODIUM [Concomitant]
     Active Substance: PANTOPRAZOLE SODIUM
     Route: 042
     Dates: start: 20220916, end: 20220921
  81. PANTOPRAZOLE SODIUM [Concomitant]
     Active Substance: PANTOPRAZOLE SODIUM
     Dates: start: 20220922, end: 20220926
  82. GLOBULIN [Concomitant]
     Route: 042
     Dates: start: 20220921, end: 20220922
  83. URSODIOL [Concomitant]
     Active Substance: URSODIOL
     Route: 048
     Dates: start: 20220921, end: 20220926
  84. VFEND [Concomitant]
     Active Substance: VORICONAZOLE
     Route: 048
     Dates: start: 20220922, end: 20220926
  85. COTRIM [Concomitant]
     Active Substance: SULFAMETHOXAZOLE\TRIMETHOPRIM
     Dosage: 3 AMPULE
     Route: 042
     Dates: start: 20220715, end: 20220719
  86. NEXIUM [Concomitant]
     Active Substance: ESOMEPRAZOLE MAGNESIUM
     Route: 042
     Dates: start: 20220718, end: 20220725
  87. PREDNISOLONE [Concomitant]
     Active Substance: PREDNISOLONE
     Dates: start: 20220729, end: 20220731
  88. CALCIUM GLUCONATE [Concomitant]
     Active Substance: CALCIUM GLUCONATE
     Route: 042
     Dates: start: 20220806, end: 20220806
  89. COMBIFLEX (SOUTH KOREA) [Concomitant]
     Route: 042
     Dates: start: 20220715, end: 20220926
  90. AMITRIPTYLINE [Concomitant]
     Active Substance: AMITRIPTYLINE
     Route: 048
     Dates: start: 20220728, end: 20220728

REACTIONS (6)
  - Sepsis [Fatal]
  - Pneumocystis jirovecii pneumonia [Recovering/Resolving]
  - Aspartate aminotransferase increased [Recovered/Resolved]
  - Alanine aminotransferase increased [Recovered/Resolved]
  - Peripheral arterial occlusive disease [Not Recovered/Not Resolved]
  - Pneumonia aspiration [Not Recovered/Not Resolved]

NARRATIVE: CASE EVENT DATE: 20220713
